FAERS Safety Report 21531900 (Version 1)
Quarter: 2022Q4

REPORT INFORMATION
  Report Type: Spontaneous
  Country: CA (occurrence: CA)
  Receive Date: 20221101
  Receipt Date: 20221101
  Transmission Date: 20230113
  Serious: Yes (Hospitalization)
  Sender: FDA-Public Use
  Company Number: CA-BAXTER-2022BAX022959

PATIENT
  Age: 80 Year
  Sex: Male
  Weight: 100 kg

DRUGS (11)
  1. CEFTRIAXONE [Suspect]
     Active Substance: CEFTRIAXONE
     Indication: Pneumonia
     Dosage: 1 GRAM (GM), 1 EVERY 1 DAYS, DOSAGE FORM: POWDER FOR SOLUTION INTRAMUSCULAR
     Route: 042
  2. CEFTRIAXONE [Suspect]
     Active Substance: CEFTRIAXONE
     Indication: Chronic obstructive pulmonary disease
     Dosage: 2 GRAMS (GM), 1 EVERY 1 DAYS, DOSAGE FORM: POWDER FOR SOLUTION INTRAMUSCULAR
     Route: 042
  3. AMOXICILLIN\CLAVULANATE POTASSIUM [Suspect]
     Active Substance: AMOXICILLIN\CLAVULANATE POTASSIUM
     Indication: Pneumonia
     Dosage: 875 MILLIGRAMS (MG), 2 EVERY 1 DAYS
     Route: 048
  4. AMOXICILLIN\CLAVULANATE POTASSIUM [Suspect]
     Active Substance: AMOXICILLIN\CLAVULANATE POTASSIUM
     Indication: Chronic obstructive pulmonary disease
  5. ASPIRIN [Concomitant]
     Active Substance: ASPIRIN
     Dosage: DOSAGE FORM: NOT SPECIFIED
     Route: 065
  6. BREO ELLIPTA [Concomitant]
     Active Substance: FLUTICASONE FUROATE\VILANTEROL TRIFENATATE
     Dosage: DOSAGE FORM: INHALATION
     Route: 065
  7. BUPROPION [Concomitant]
     Active Substance: BUPROPION
     Dosage: XL (EXTENDED RELEASE)
     Route: 065
  8. RAPAFLO [Concomitant]
     Active Substance: SILODOSIN
     Dosage: DOSAGE FORM: NOT SPECIFIED
     Route: 065
  9. ALBUTEROL [Concomitant]
     Active Substance: ALBUTEROL
     Dosage: DOSAGE FORM: INHALATION
     Route: 065
  10. VITAMIN B12 [Concomitant]
     Active Substance: CYANOCOBALAMIN
     Dosage: UNK
     Route: 065
  11. VITAMIN D3 [Concomitant]
     Active Substance: CHOLECALCIFEROL
     Dosage: (1000 IU TABLETS)
     Route: 065

REACTIONS (2)
  - Clostridium test positive [Unknown]
  - Diarrhoea [Unknown]
